FAERS Safety Report 17319674 (Version 2)
Quarter: 2020Q1

REPORT INFORMATION
  Report Type: Report from Study
  Country: JP (occurrence: JP)
  Receive Date: 20200125
  Receipt Date: 20200316
  Transmission Date: 20200409
  Serious: Yes (Hospitalization, Disabling, Other)
  Sender: FDA-Public Use
  Company Number: JP-AMGEN-JPNCT2020011582

PATIENT
  Age: 50 Year
  Sex: Male

DRUGS (39)
  1. NEORAL [Suspect]
     Active Substance: CYCLOSPORINE
     Dosage: 125 MG, BID
     Route: 048
     Dates: start: 20190831
  2. NEORAL [Suspect]
     Active Substance: CYCLOSPORINE
     Dosage: 400 MG
     Route: 048
     Dates: start: 20190907, end: 20190921
  3. NEORAL [Suspect]
     Active Substance: CYCLOSPORINE
     Dosage: 100 MG
     Route: 048
     Dates: start: 20191019
  4. PRIMOBOLAN [Concomitant]
     Active Substance: METHENOLONE
     Indication: APLASTIC ANAEMIA
     Dosage: 3C
     Route: 048
     Dates: start: 20080218
  5. PREDNISOLONE. [Concomitant]
     Active Substance: PREDNISOLONE
     Dosage: 15 MG
     Route: 048
     Dates: start: 20190707, end: 20190721
  6. ROMIPLOSTIM [Suspect]
     Active Substance: ROMIPLOSTIM
     Indication: APLASTIC ANAEMIA
     Dosage: 750 MICROGRAM, QWK
     Route: 058
     Dates: start: 20190803, end: 20190914
  7. NEORAL [Suspect]
     Active Substance: CYCLOSPORINE
     Dosage: 8C+2C (25)
     Route: 048
     Dates: start: 20140510
  8. NEORAL [Suspect]
     Active Substance: CYCLOSPORINE
     Dosage: 7C
     Route: 048
     Dates: start: 20160213
  9. NEORAL [Suspect]
     Active Substance: CYCLOSPORINE
     Dosage: 20 MG
     Route: 048
     Dates: start: 20191203
  10. TAKEPRON [Concomitant]
     Active Substance: LANSOPRAZOLE
     Dosage: UNK
     Route: 048
  11. ROMIPLOSTIM [Suspect]
     Active Substance: ROMIPLOSTIM
     Dosage: UNK
     Route: 058
  12. NEORAL [Suspect]
     Active Substance: CYCLOSPORINE
     Dosage: 3C
     Route: 048
     Dates: start: 20100113
  13. NEORAL [Suspect]
     Active Substance: CYCLOSPORINE
     Dosage: 5C
     Route: 048
     Dates: start: 20100407
  14. NEORAL [Suspect]
     Active Substance: CYCLOSPORINE
     Dosage: 8C
     Route: 048
     Dates: start: 20120206
  15. ROMIPLOSTIM [Suspect]
     Active Substance: ROMIPLOSTIM
     Dosage: 1125 MICROGRAM, QWK
     Route: 058
     Dates: start: 20191102, end: 20191109
  16. NEORAL [Suspect]
     Active Substance: CYCLOSPORINE
     Dosage: 7C
     Route: 048
     Dates: start: 20130418
  17. NEORAL [Suspect]
     Active Substance: CYCLOSPORINE
     Dosage: 6C
     Route: 048
     Dates: start: 20160423
  18. PREDNISOLONE. [Concomitant]
     Active Substance: PREDNISOLONE
     Indication: APLASTIC ANAEMIA
     Dosage: 75 MG
     Route: 048
     Dates: start: 20190525
  19. ROMIPLOSTIM [Suspect]
     Active Substance: ROMIPLOSTIM
     Dosage: 1000 MICROGRAM, QWK
     Route: 058
     Dates: start: 20191116, end: 20191130
  20. NEORAL [Suspect]
     Active Substance: CYCLOSPORINE
     Dosage: 6C
     Route: 048
     Dates: start: 20110725
  21. NEORAL [Suspect]
     Active Substance: CYCLOSPORINE
     Dosage: 8C
     Route: 048
     Dates: start: 20141108
  22. NEORAL [Suspect]
     Active Substance: CYCLOSPORINE
     Dosage: DIVIDED INTO TWO DOSES
     Route: 048
     Dates: start: 20191116
  23. CARDENALIN [Concomitant]
     Active Substance: DOXAZOSIN MESYLATE
     Dosage: UNK
     Route: 048
  24. PREDNISOLONE. [Concomitant]
     Active Substance: PREDNISOLONE
     Dosage: 5 MG
     Route: 048
     Dates: start: 20190804
  25. ATELEC [Concomitant]
     Active Substance: CILNIDIPINE
     Indication: HYPERTENSION
     Dosage: UNK
     Route: 048
  26. PREDNISOLONE. [Concomitant]
     Active Substance: PREDNISOLONE
     Dosage: 30 MG
     Route: 048
     Dates: start: 20190621, end: 20190706
  27. PREDNISOLONE. [Concomitant]
     Active Substance: PREDNISOLONE
     Dosage: 10 MG
     Route: 048
     Dates: start: 20190722, end: 20190803
  28. ROMIPLOSTIM [Suspect]
     Active Substance: ROMIPLOSTIM
     Dosage: 1000 MICROGRAM, QWK
     Route: 058
     Dates: start: 20190928, end: 20191026
  29. NEORAL [Suspect]
     Active Substance: CYCLOSPORINE
     Dosage: 6C+2C (25)
     Route: 048
     Dates: start: 20150117
  30. NEORAL [Suspect]
     Active Substance: CYCLOSPORINE
     Dosage: 50 MG
     Route: 048
     Dates: start: 20191102
  31. CALSLOT [Concomitant]
     Active Substance: MANIDIPINE HYDROCHLORIDE
     Indication: HYPERTENSION
     Dosage: UNK
     Route: 048
  32. PRIMOBOLAN [Concomitant]
     Active Substance: METHENOLONE
     Dosage: 4C
     Route: 048
     Dates: start: 20100508
  33. ROMIPLOSTIM [Suspect]
     Active Substance: ROMIPLOSTIM
     Dosage: 1250 MICROGRAM, QWK
     Route: 058
     Dates: start: 20190921, end: 20190921
  34. NEORAL [Suspect]
     Active Substance: CYCLOSPORINE
     Indication: APLASTIC ANAEMIA
     Dosage: 2C
     Route: 048
     Dates: start: 20090529
  35. NEORAL [Suspect]
     Active Substance: CYCLOSPORINE
     Dosage: 200 MG
     Route: 048
     Dates: start: 20190921
  36. ATELEC [Concomitant]
     Active Substance: CILNIDIPINE
     Dosage: UNK
     Route: 048
  37. TAKEPRON [Concomitant]
     Active Substance: LANSOPRAZOLE
     Indication: PRODUCT USED FOR UNKNOWN INDICATION
     Dosage: UNK
     Route: 048
  38. CARDENALIN [Concomitant]
     Active Substance: DOXAZOSIN MESYLATE
     Indication: HYPERTENSION
     Dosage: UNK
     Route: 048
  39. PREDNISOLONE. [Concomitant]
     Active Substance: PREDNISOLONE
     Dosage: 50 MG
     Route: 048
     Dates: start: 20190605, end: 20190620

REACTIONS (2)
  - Renal impairment [Not Recovered/Not Resolved]
  - Hypertension [Recovering/Resolving]

NARRATIVE: CASE EVENT DATE: 20190907
